FAERS Safety Report 12174234 (Version 3)
Quarter: 2016Q1

REPORT INFORMATION
  Report Type: Report from Study
  Country: CA (occurrence: CA)
  Receive Date: 20160314
  Receipt Date: 20160325
  Transmission Date: 20160526
  Serious: Yes (Other)
  Sender: FDA-Public Use
  Company Number: CA-ROCHE-1577661

PATIENT
  Age: 37 Year
  Sex: Female
  Weight: 91.1 kg

DRUGS (13)
  1. RITUXAN [Suspect]
     Active Substance: RITUXIMAB
     Route: 042
     Dates: start: 20160309
  2. CELEXA [Concomitant]
     Active Substance: CITALOPRAM HYDROBROMIDE
  3. TEGRETOL [Concomitant]
     Active Substance: CARBAMAZEPINE
  4. LYRICA [Concomitant]
     Active Substance: PREGABALIN
     Dosage: IN TRANSITION TO NEUROTIN
     Route: 065
  5. DICETEL [Concomitant]
     Active Substance: PINAVERIUM BROMIDE
  6. DIPHENHYDRAMINE HYDROCHLORIDE. [Concomitant]
     Active Substance: DIPHENHYDRAMINE HYDROCHLORIDE
     Indication: PREMEDICATION
     Route: 048
     Dates: start: 20150512
  7. IMURAN [Concomitant]
     Active Substance: AZATHIOPRINE
  8. METHYLPREDNISOLONE. [Concomitant]
     Active Substance: METHYLPREDNISOLONE
     Indication: PREMEDICATION
     Route: 042
     Dates: start: 20150512
  9. RITUXAN [Suspect]
     Active Substance: RITUXIMAB
     Indication: NEUROMYELITIS OPTICA SPECTRUM DISORDER
     Route: 042
     Dates: start: 20150512
  10. BACLOFEN. [Concomitant]
     Active Substance: BACLOFEN
  11. ELAVIL [Concomitant]
     Active Substance: AMITRIPTYLINE HYDROCHLORIDE
  12. ACETAMINOPHEN. [Concomitant]
     Active Substance: ACETAMINOPHEN
     Indication: PREMEDICATION
     Route: 048
     Dates: start: 20150512
  13. PANTOLOC [Concomitant]
     Active Substance: PANTOPRAZOLE SODIUM

REACTIONS (17)
  - Heart rate increased [Unknown]
  - Pneumonia [Not Recovered/Not Resolved]
  - Infusion related reaction [Recovered/Resolved]
  - Oedema peripheral [Unknown]
  - Cough [Not Recovered/Not Resolved]
  - Hypoaesthesia [Unknown]
  - Aphonia [Recovering/Resolving]
  - Gastroenteritis [Recovered/Resolved]
  - Medication error [Unknown]
  - Headache [Unknown]
  - Diarrhoea [Recovered/Resolved]
  - Fatigue [Not Recovered/Not Resolved]
  - Off label use [Unknown]
  - Varicose vein [Unknown]
  - Peripheral swelling [Recovering/Resolving]
  - Alopecia [Recovering/Resolving]
  - Sinusitis [Unknown]

NARRATIVE: CASE EVENT DATE: 20150512
